FAERS Safety Report 23305623 (Version 1)
Quarter: 2023Q4

REPORT INFORMATION
  Report Type: Spontaneous
  Country: RU (occurrence: RU)
  Receive Date: 20231218
  Receipt Date: 20231218
  Transmission Date: 20240109
  Serious: Yes (Other)
  Sender: FDA-Public Use
  Company Number: RU-BAXTER-2023BAX038279

PATIENT
  Age: 63 Year
  Sex: Female
  Weight: 151 kg

DRUGS (3)
  1. MESNA [Suspect]
     Active Substance: MESNA
     Indication: Detoxification
     Dosage: 2130 MG, D1, 710 MG BEFORE ADMINISTRATION OF IFOSFAMIDE, THEN 3550 MG 24-HOUR INFUSION, THEN 2130 MG
     Route: 041
     Dates: start: 20231128, end: 20231202
  2. IFOSFAMIDE [Suspect]
     Active Substance: IFOSFAMIDE
     Indication: Chemotherapy
     Dosage: 2500 MG/M2, D1, ON THE 1ST, 2ND, 3RD DAY OF THE CYCLE
     Route: 041
     Dates: start: 20231128, end: 20231202
  3. DOXORUBICIN [Suspect]
     Active Substance: DOXORUBICIN
     Indication: Chemotherapy
     Dosage: 25 MG/M2, D1, ON THE 1ST, 2ND, 3RD DAY OF THE CYCLE
     Route: 041
     Dates: start: 20231128, end: 20231201

REACTIONS (2)
  - Loss of consciousness [Recovering/Resolving]
  - Neutropenia [Not Recovered/Not Resolved]

NARRATIVE: CASE EVENT DATE: 20231206
